FAERS Safety Report 8885527 (Version 2)
Quarter: 2012Q4

REPORT INFORMATION
  Report Type: 
  Country: JP (occurrence: JP)
  Receive Date: 20121105
  Receipt Date: 20121120
  Transmission Date: 20130627
  Serious: Yes (Other)
  Sender: FDA-Public Use
  Company Number: JP-PFIZER INC-2012273286

PATIENT
  Age: 64 Year
  Sex: Female

DRUGS (2)
  1. MIGLITOL [Suspect]
     Indication: GLUCOSE INTOLERANCE
     Dosage: 50 mg, 3x/day
     Route: 048
  2. PREDNISOLONE [Suspect]
     Dosage: 40mg (tapering), UNK
     Route: 065

REACTIONS (1)
  - Pneumatosis intestinalis [Unknown]
